FAERS Safety Report 10165054 (Version 2)
Quarter: 2014Q2

REPORT INFORMATION
  Report Type: Spontaneous
  Country: US (occurrence: US)
  Receive Date: 20140510
  Receipt Date: 20140510
  Transmission Date: 20141212
  Serious: Yes (Other)
  Sender: FDA-Public Use
  Company Number: US-BRISTOL-MYERS SQUIBB COMPANY-20266052

PATIENT
  Age: 56 Year
  Sex: Female

DRUGS (1)
  1. BYDUREON [Suspect]
     Dosage: 3 WEEKS
     Route: 058

REACTIONS (1)
  - Hypersensitivity [Unknown]
